FAERS Safety Report 12119521 (Version 1)
Quarter: 2016Q1

REPORT INFORMATION
  Report Type: Spontaneous
  Country: US (occurrence: None)
  Receive Date: 20160225
  Receipt Date: 20160225
  Transmission Date: 20160526
  Serious: Yes (Hospitalization)
  Sender: FDA-Public Use
  Company Number: None

PATIENT
  Age: 48 Year
  Sex: Female
  Weight: 70 kg

DRUGS (1)
  1. WARFARIN 5 MG [Suspect]
     Active Substance: WARFARIN
     Indication: DEEP VEIN THROMBOSIS
     Dosage: 1/2-1 TABLETS QD ORAL
     Route: 048

REACTIONS (3)
  - Melaena [None]
  - Abdominal pain [None]
  - Haematuria [None]

NARRATIVE: CASE EVENT DATE: 20160202
